FAERS Safety Report 9732150 (Version 1)
Quarter: 2013Q4

REPORT INFORMATION
  Report Type: Spontaneous
  Country: US (occurrence: US)
  Receive Date: 20131205
  Receipt Date: 20131205
  Transmission Date: 20140711
  Serious: Yes (Other)
  Sender: FDA-Public Use
  Company Number: US-ASTELLAS-2013US012595

PATIENT
  Age: 90 Year
  Sex: Female

DRUGS (1)
  1. MYRBETRIQ [Suspect]
     Indication: INCONTINENCE
     Dosage: 50 MG, UID/QD
     Route: 048
     Dates: start: 20130930, end: 201311

REACTIONS (2)
  - Intentional drug misuse [Unknown]
  - Electrocardiogram QT prolonged [Unknown]
